FAERS Safety Report 19581874 (Version 2)
Quarter: 2021Q3

REPORT INFORMATION
  Report Type: Spontaneous
  Country: US (occurrence: US)
  Receive Date: 20210720
  Receipt Date: 20210728
  Transmission Date: 20211014
  Serious: Yes (Death, Hospitalization, Other)
  Sender: FDA-Public Use
  Company Number: US-BIOVITRUM-2021US6912

PATIENT
  Sex: Male

DRUGS (1)
  1. SYNAGIS [Suspect]
     Active Substance: PALIVIZUMAB
     Indication: PRODUCT USED FOR UNKNOWN INDICATION
     Dosage: DOSED WITH SYNAGIS AT DISCHARGE IN MID JUN/2021

REACTIONS (3)
  - Viral infection [Unknown]
  - Death [Fatal]
  - Respiratory syncytial virus infection [Unknown]

NARRATIVE: CASE EVENT DATE: 202107
